FAERS Safety Report 10515272 (Version 2)
Quarter: 2014Q4

REPORT INFORMATION
  Report Type: Report from Study
  Country: US (occurrence: US)
  Receive Date: 20141014
  Receipt Date: 20141014
  Transmission Date: 20150528
  Serious: Yes (Hospitalization, Other)
  Sender: FDA-Public Use
  Company Number: US-BIOGENIDEC-203804

PATIENT
  Age: 45 Year
  Sex: Female

DRUGS (4)
  1. AVONEX [Suspect]
     Active Substance: INTERFERON BETA-1A
     Indication: MULTIPLE SCLEROSIS
     Route: 030
     Dates: start: 20140210
  2. AVONEX [Suspect]
     Active Substance: INTERFERON BETA-1A
     Indication: MULTIPLE SCLEROSIS
     Route: 030
     Dates: start: 19990611, end: 200310
  3. AVONEX [Suspect]
     Active Substance: INTERFERON BETA-1A
     Indication: MULTIPLE SCLEROSIS
     Route: 030
     Dates: start: 20070916, end: 20100501
  4. AVONEX [Suspect]
     Active Substance: INTERFERON BETA-1A
     Indication: MULTIPLE SCLEROSIS
     Route: 030
     Dates: end: 20070508

REACTIONS (14)
  - Rash [Recovered/Resolved]
  - Blood pressure increased [Recovered/Resolved]
  - Optic neuritis [Recovered/Resolved]
  - Wound dehiscence [Unknown]
  - Heart rate increased [Recovered/Resolved]
  - Incontinence [Not Recovered/Not Resolved]
  - Uterine leiomyoma [Recovered/Resolved]
  - Fall [Recovered/Resolved]
  - Thyroid neoplasm [Not Recovered/Not Resolved]
  - Contusion [Recovered/Resolved]
  - Knee operation [Unknown]
  - Knee arthroplasty [Recovered/Resolved]
  - Goitre [Not Recovered/Not Resolved]
  - Multiple sclerosis relapse [Recovered/Resolved]

NARRATIVE: CASE EVENT DATE: 20000915
